FAERS Safety Report 4984226-4 (Version None)
Quarter: 2006Q2

REPORT INFORMATION
  Report Type: 
  Country: None (occurrence: None)
  Receive Date: 20060427
  Receipt Date: 20060419
  Transmission Date: 20061013
  Serious: Yes (Death, Other)
  Sender: FDA-Public Use
  Company Number: PHEH2006US05173

PATIENT
  Age: 57 Year
  Sex: Female

DRUGS (2)
  1. CLOZARIL [Suspect]
     Indication: SCHIZOPHRENIA
     Dosage: 300 MG, QD
     Route: 048
     Dates: start: 19970101
  2. CLOZARIL [Suspect]
     Dosage: 400-500MG, QD
     Route: 048
     Dates: end: 19970101

REACTIONS (13)
  - ANOREXIA [None]
  - BIOPSY BREAST ABNORMAL [None]
  - CONFUSIONAL STATE [None]
  - HAEMATOCRIT DECREASED [None]
  - HAEMOGLOBIN DECREASED [None]
  - HALLUCINATION, AUDITORY [None]
  - INFLAMMATORY CARCINOMA OF THE BREAST [None]
  - MAMMOGRAM ABNORMAL [None]
  - MEAN CELL VOLUME ABNORMAL [None]
  - PERNICIOUS ANAEMIA [None]
  - PSYCHOTIC DISORDER [None]
  - VITAMIN B12 DECREASED [None]
  - WEIGHT DECREASED [None]
